FAERS Safety Report 8927676 (Version 4)
Quarter: 2012Q4

REPORT INFORMATION
  Report Type: 
  Country: DK (occurrence: DK)
  Receive Date: 20121127
  Receipt Date: 20121224
  Transmission Date: 20130627
  Serious: Yes (Hospitalization, Other)
  Sender: FDA-Public Use
  Company Number: PHHY2012DK107088

PATIENT
  Age: 31 Year
  Sex: Female

DRUGS (2)
  1. GILENYA [Suspect]
     Indication: MULTIPLE SCLEROSIS
     Dosage: UNK UKN, UNK
     Route: 048
     Dates: start: 20120515, end: 20121015
  2. GILENYA [Suspect]
     Dosage: UNK
     Route: 048
     Dates: start: 20121019

REACTIONS (23)
  - Grand mal convulsion [Recovered/Resolved]
  - Postictal paralysis [Recovering/Resolving]
  - Blood pH decreased [Unknown]
  - Hemiparesis [Not Recovered/Not Resolved]
  - Aphasia [Recovering/Resolving]
  - Loss of consciousness [Unknown]
  - Muscle rigidity [Unknown]
  - Amnesia [Unknown]
  - Confusional state [Unknown]
  - Somnolence [Unknown]
  - Gliosis [Not Recovered/Not Resolved]
  - Encephalitis herpes [Recovered/Resolved with Sequelae]
  - Brain oedema [Recovering/Resolving]
  - Cerebral haemorrhage [Recovering/Resolving]
  - Pyrexia [Recovering/Resolving]
  - Infection [Recovering/Resolving]
  - Urinary tract infection [Recovering/Resolving]
  - Multiple sclerosis relapse [Recovering/Resolving]
  - Muscle spasms [Recovering/Resolving]
  - Central nervous system lesion [Recovering/Resolving]
  - Muscular weakness [Recovering/Resolving]
  - Partial seizures [Recovering/Resolving]
  - Electroencephalogram abnormal [Recovering/Resolving]
